FAERS Safety Report 10444002 (Version 1)
Quarter: 2014Q3

REPORT INFORMATION
  Report Type: Spontaneous
  Country: US (occurrence: US)
  Receive Date: 20140910
  Receipt Date: 20140910
  Transmission Date: 20150326
  Serious: No
  Sender: FDA-Public Use
  Company Number: US-TARO-2014TAR00137

PATIENT
  Age: 59 Year
  Sex: Male
  Weight: 70.3 kg

DRUGS (6)
  1. WARFARIN SODIUM TABLETS USP 5MG [Suspect]
     Active Substance: WARFARIN SODIUM
     Indication: CARDIAC DISORDER
     Dosage: 5 MG, 6X/WEEK
     Route: 048
     Dates: start: 2002
  2. METOPROLOL [Suspect]
     Active Substance: METOPROLOL
     Dosage: UNK UNK, 6X/WEEK
     Dates: start: 201406
  3. CITRACAL [Concomitant]
     Active Substance: CALCIUM CITRATE
  4. WARFARIN SODIUM TABLETS USP 5MG [Suspect]
     Active Substance: WARFARIN SODIUM
     Dosage: 2.5 MG, 1X/WEEK
     Route: 048
     Dates: start: 2002
  5. ALPHA LIPOIC ACID [Concomitant]
     Active Substance: .ALPHA.-LIPOIC ACID
  6. MAG OX (MAGNESIUM OXIDE) [Concomitant]
     Dosage: 400 MG, UNK

REACTIONS (5)
  - Dizziness [Recovering/Resolving]
  - Feeling abnormal [Recovering/Resolving]
  - Speech disorder [Recovering/Resolving]
  - Gastrooesophageal reflux disease [Not Recovered/Not Resolved]
  - Orthostatic intolerance [Not Recovered/Not Resolved]

NARRATIVE: CASE EVENT DATE: 201406
